FAERS Safety Report 8196215-X (Version None)
Quarter: 2012Q1

REPORT INFORMATION
  Report Type: 
  Country: None (occurrence: None)
  Receive Date: 20120307
  Receipt Date: 20120307
  Transmission Date: 20120608
  Serious: Yes (Hospitalization)
  Sender: FDA-Public Use
  Company Number: None

PATIENT
  Sex: Male
  Weight: 100 kg

DRUGS (5)
  1. RITUXIMAB (MOAB C2B8 ANTI CD20, CHIMERIC) [Suspect]
     Dosage: 800 MG
  2. VINCRISTINE SULFATE [Suspect]
     Dosage: 2 MG
  3. CYCLOPHOSPHAMIDE [Suspect]
     Dosage: 1650 MG
  4. DOXORUBICIN HCL [Suspect]
     Dosage: 110 MG
  5. PREDNISONE [Suspect]
     Dosage: 500 MG

REACTIONS (3)
  - PANCYTOPENIA [None]
  - BLOOD CULTURE POSITIVE [None]
  - LETHARGY [None]
